FAERS Safety Report 4388279-6 (Version None)
Quarter: 2004Q2

REPORT INFORMATION
  Report Type: 
  Country: None (occurrence: None)
  Receive Date: 20040625
  Receipt Date: 20040616
  Transmission Date: 20050107
  Serious: No
  Sender: FDA-Public Use
  Company Number: 2004-117461-NL

PATIENT
  Age: 24 Year
  Sex: Female

DRUGS (2)
  1. MIRTAZAPINE [Suspect]
     Indication: ANXIETY
     Dosage: 15 MG/22.5 MG
     Route: 048
     Dates: start: 20040521, end: 20040609
  2. MIRTAZAPINE [Suspect]
     Indication: ANXIETY
     Dosage: 15 MG/22.5 MG
     Route: 048
     Dates: start: 20040610

REACTIONS (7)
  - AGITATION [None]
  - ALANINE AMINOTRANSFERASE INCREASED [None]
  - ASPARTATE AMINOTRANSFERASE INCREASED [None]
  - CRYING [None]
  - PSYCHIATRIC SYMPTOM [None]
  - SUICIDAL IDEATION [None]
  - THINKING ABNORMAL [None]
